FAERS Safety Report 8025225-8 (Version None)
Quarter: 2012Q1

REPORT INFORMATION
  Report Type: 
  Country: None (occurrence: None)
  Receive Date: 20120105
  Receipt Date: 20111229
  Transmission Date: 20120608
  Serious: Yes (Other)
  Sender: FDA-Public Use
  Company Number: JP-ROCHE-1025875

PATIENT
  Age: 72 Year
  Sex: Male

DRUGS (10)
  1. AVASTIN [Suspect]
     Route: 041
  2. LEVOLEUCOVORIN CALCIUM [Concomitant]
     Indication: COLON CANCER METASTATIC
     Dosage: DOSAGE IS UNCERTAIN.
     Route: 041
  3. OXALIPLATIN [Concomitant]
     Indication: COLON CANCER METASTATIC
     Dosage: DOSAGE IS UNCERTAIN.
     Route: 041
  4. AVASTIN [Suspect]
     Indication: COLON CANCER METASTATIC
     Dosage: DOSAGE IS UNCERTAIN.
     Route: 041
  5. FLUOROURACIL [Suspect]
     Dosage: DOSAGE IS UNCERTAIN.
     Route: 041
  6. OXALIPLATIN [Concomitant]
     Route: 041
  7. FLUOROURACIL [Suspect]
     Indication: COLON CANCER METASTATIC
     Dosage: DOSAGE IS UNCERTAIN.
     Route: 040
  8. LEVOLEUCOVORIN CALCIUM [Concomitant]
     Route: 041
  9. FLUOROURACIL [Suspect]
     Dosage: DOSAGE IS UNCERTAIN.
     Route: 040
  10. FLUOROURACIL [Suspect]
     Dosage: DOSAGE IS UNCERTAIN.
     Route: 041

REACTIONS (1)
  - LEUKOENCEPHALOPATHY [None]
